FAERS Safety Report 13185456 (Version 2)
Quarter: 2018Q2

REPORT INFORMATION
  Report Type: Report from Study
  Country: US (occurrence: US)
  Receive Date: 20170203
  Receipt Date: 20180417
  Transmission Date: 20180711
  Serious: Yes (Hospitalization, Other)
  Sender: FDA-Public Use
  Company Number: US-BAXALTA-2017BLT000884

PATIENT
  Age: 4 Year
  Sex: Male
  Weight: 19.6 kg

DRUGS (13)
  1. CYCLOPHOSPHAMIDE. [Suspect]
     Active Substance: CYCLOPHOSPHAMIDE
     Dosage: 780 MG
     Route: 042
     Dates: start: 20161026
  2. ONCASPAR [Suspect]
     Active Substance: PEGASPARGASE
     Dosage: 1975 IU
     Route: 065
     Dates: start: 20161109
  3. CYCLOPHOSPHAMIDE. [Suspect]
     Active Substance: CYCLOPHOSPHAMIDE
     Indication: ACUTE LYMPHOCYTIC LEUKAEMIA
     Dosage: 780 MG
     Route: 042
     Dates: start: 20161125, end: 20161125
  4. METHOTREXATE. [Suspect]
     Active Substance: METHOTREXATE
     Indication: ACUTE LYMPHOCYTIC LEUKAEMIA
     Dosage: 12 MG
     Route: 042
     Dates: start: 20161116, end: 20161116
  5. METHOTREXATE. [Suspect]
     Active Substance: METHOTREXATE
     Dosage: 12 MG
     Route: 042
     Dates: start: 20161026
  6. RUXOLITINIB [Suspect]
     Active Substance: RUXOLITINIB
     Indication: ACUTE LYMPHOCYTIC LEUKAEMIA
     Dosage: 30 MG, 2X A DAY
     Route: 048
     Dates: start: 20161213, end: 20161213
  7. CYTARABINE. [Suspect]
     Active Substance: CYTARABINE
     Indication: ACUTE LYMPHOCYTIC LEUKAEMIA
     Dosage: 59 MG
     Route: 042
     Dates: start: 20161026
  8. ONCASPAR [Suspect]
     Active Substance: PEGASPARGASE
     Indication: ACUTE LYMPHOCYTIC LEUKAEMIA
     Dosage: 1975 IU
     Route: 065
     Dates: start: 20161214, end: 20161214
  9. VINCRISTINE [Suspect]
     Active Substance: VINCRISTINE
     Indication: ACUTE LYMPHOCYTIC LEUKAEMIA
     Dosage: 1.2 MG
     Route: 042
     Dates: start: 20161221, end: 20161221
  10. VINCRISTINE [Suspect]
     Active Substance: VINCRISTINE
     Dosage: 1.2 MG
     Route: 042
     Dates: start: 20161109
  11. RUXOLITINIB [Suspect]
     Active Substance: RUXOLITINIB
     Dosage: 30 MG, 2X A DAY
     Route: 048
     Dates: start: 20161026
  12. CYTARABINE. [Suspect]
     Active Substance: CYTARABINE
     Dosage: 59 MG
     Route: 042
     Dates: start: 20161207, end: 20161207
  13. MERCAPTOPURINE. [Suspect]
     Active Substance: MERCAPTOPURINE
     Indication: ACUTE LYMPHOCYTIC LEUKAEMIA
     Dosage: 50 MG, UNK
     Route: 048
     Dates: start: 20161026

REACTIONS (1)
  - Febrile neutropenia [Recovered/Resolved]

NARRATIVE: CASE EVENT DATE: 20161226
